FAERS Safety Report 16053441 (Version 5)
Quarter: 2019Q2

REPORT INFORMATION
  Report Type: Spontaneous
  Country: JP (occurrence: JP)
  Receive Date: 20190308
  Receipt Date: 20190612
  Transmission Date: 20190711
  Serious: Yes (Life-Threatening, Hospitalization, Other)
  Sender: FDA-Public Use
  Company Number: JP-NOVOPROD-650532

PATIENT
  Age: 53 Year
  Sex: Male
  Weight: 74.3 kg

DRUGS (11)
  1. METGLUCO [Suspect]
     Active Substance: METFORMIN HYDROCHLORIDE
     Dosage: 750 MG, QD
     Route: 048
     Dates: start: 20180927
  2. METGLUCO [Suspect]
     Active Substance: METFORMIN HYDROCHLORIDE
     Dosage: 1000 MG, QD
     Route: 048
     Dates: start: 20181206
  3. MEVARICH [Suspect]
     Active Substance: PRAVASTATIN
     Indication: DYSLIPIDAEMIA
     Dosage: 10 MG, QD
     Route: 048
     Dates: start: 20150107
  4. TRESIBA [Suspect]
     Active Substance: INSULIN DEGLUDEC
     Indication: TYPE 2 DIABETES MELLITUS
     Dosage: 8 IU, QD
     Route: 058
     Dates: start: 20180427
  5. TRULICITY [Suspect]
     Active Substance: DULAGLUTIDE
     Indication: TYPE 2 DIABETES MELLITUS
     Dosage: 0.75 MG, QW
     Route: 058
     Dates: start: 20170829, end: 20180522
  6. VICTOZA [Suspect]
     Active Substance: LIRAGLUTIDE
     Dosage: 0.6 MG, QD
     Route: 058
     Dates: start: 20140531
  7. METHYLCOBAL [Suspect]
     Active Substance: METHYLCOBALAMIN
     Indication: EYE SYMPTOM
     Dosage: 1500 ?G, QD
     Route: 065
     Dates: start: 20160914
  8. VICTOZA [Suspect]
     Active Substance: LIRAGLUTIDE
     Indication: DIABETES MELLITUS
     Dosage: 0.3 MG, QD
     Route: 058
     Dates: start: 20130705
  9. METGLUCO [Suspect]
     Active Substance: METFORMIN HYDROCHLORIDE
     Indication: TYPE 2 DIABETES MELLITUS
     Dosage: 500 MG, QD
     Route: 048
     Dates: start: 20150427
  10. VICTOZA [Suspect]
     Active Substance: LIRAGLUTIDE
     Dosage: 0.9 MG, QD
     Route: 058
     Dates: start: 20180522
  11. VICTOZA [Suspect]
     Active Substance: LIRAGLUTIDE
     Dosage: 0.9 MG, QD
     Route: 058
     Dates: start: 20140920

REACTIONS (3)
  - Benign prostatic hyperplasia [Unknown]
  - Drug titration error [Unknown]
  - Pancreatic carcinoma [Unknown]

NARRATIVE: CASE EVENT DATE: 201811
